FAERS Safety Report 4675918-5 (Version None)
Quarter: 2005Q2

REPORT INFORMATION
  Report Type: 
  Country: None (occurrence: None)
  Receive Date: 20050526
  Receipt Date: 20050526
  Transmission Date: 20051028
  Serious: Yes (Death, Hospitalization)
  Sender: FDA-Public Use
  Company Number: None

PATIENT
  Sex: Male
  Weight: 70.6 kg

DRUGS (14)
  1. PEG-L-ASPARAGINASE [Suspect]
  2. ALLOPURINOL [Suspect]
     Dosage: 300MG PO DAILY, DAYS 1-7
     Route: 048
     Dates: start: 19991105, end: 19991111
  3. DAUNORUBICIN HCL [Suspect]
     Dosage: 60 MG/M2 IV DAYS 1, 2, AND 3
     Route: 042
     Dates: start: 19991105, end: 19991107
  4. VINCRISTINE [Suspect]
     Dosage: 1.4 MG/M2 - 2 MG MAX) IV DAYS 1, 8, 15 AND 22
     Route: 042
     Dates: start: 19991105
  5. VINCRISTINE [Suspect]
     Dosage: 1.4 MG/M2 - 2 MG MAX) IV DAYS 1, 8, 15 AND 22
     Route: 042
     Dates: start: 19991112
  6. VINCRISTINE [Suspect]
     Dosage: 1.4 MG/M2 - 2 MG MAX) IV DAYS 1, 8, 15 AND 22
     Route: 042
     Dates: start: 19991119
  7. VINCRISTINE [Suspect]
     Dosage: 1.4 MG/M2 - 2 MG MAX) IV DAYS 1, 8, 15 AND 22
     Route: 042
     Dates: start: 19991126
  8. PREDNISONE TAB [Suspect]
     Dosage: 60 MG/M2/D PO 1-21, 22-28 (TAPERED BETWEEN DAY 29-42)
     Route: 048
  9. L-ASPARAGINASE [Suspect]
     Dosage: 10,000 UNITS/D ADMINISTERED IV DAYS 15-24
     Route: 042
     Dates: start: 19991119, end: 19991128
  10. BACTRIM DS [Suspect]
     Dosage: P.O. BID EVERY MONDAY + THURSDAY
     Route: 048
  11. METHOTREXATE [Suspect]
     Dosage: 12 MG
  12. CYTARABINE [Suspect]
     Dosage: 136 MG IVP
     Route: 042
     Dates: start: 20000113, end: 20000114
  13. MERCAPTOPURINE [Suspect]
     Dosage: 60 MG/M2
     Dates: start: 20000113
  14. MERCAPTOPURINE [Suspect]
     Dosage: 60 MG/M2
     Dates: start: 20000114

REACTIONS (9)
  - ACUTE RESPIRATORY DISTRESS SYNDROME [None]
  - GASTROINTESTINAL HAEMORRHAGE [None]
  - GENERAL PHYSICAL HEALTH DETERIORATION [None]
  - LEUKAEMIA RECURRENT [None]
  - NEUTROPENIA [None]
  - PANCYTOPENIA [None]
  - PULMONARY HAEMORRHAGE [None]
  - PYREXIA [None]
  - THERAPY NON-RESPONDER [None]
